FAERS Safety Report 7487386-9 (Version None)
Quarter: 2011Q2

REPORT INFORMATION
  Report Type: 
  Country: None (occurrence: None)
  Receive Date: 20110510
  Receipt Date: 20110425
  Transmission Date: 20111010
  Serious: Yes (Hospitalization)
  Sender: FDA-Public Use
  Company Number: DSJ-2011-08039

PATIENT
  Age: 68 Year
  Sex: Male
  Weight: 75 kg

DRUGS (9)
  1. JUVELA (TOCOPHERYL ACETATE) (TOCOPHERYL ACETATE) [Concomitant]
  2. MECOBALAMIN (MECOBALAMIN) (MECOBALAMIN) [Concomitant]
  3. CELECOX (CELECOXIB) (CELECOXIB) [Concomitant]
  4. OLMESARTAN MEDOXOMIL [Suspect]
     Indication: PRODUCT USED FOR UNKNOWN INDICATION
     Dosage: 20 MG, PER ORAL; 10 MG, PER ORAL
     Route: 048
     Dates: end: 20100301
  5. OLMESARTAN MEDOXOMIL [Suspect]
     Indication: PRODUCT USED FOR UNKNOWN INDICATION
     Dosage: 20 MG, PER ORAL; 10 MG, PER ORAL
     Route: 048
     Dates: start: 20100301
  6. METFORMIN HYDROCHLORIDE [Concomitant]
  7. TERNELIN (TIZANIDINE HYDROCHLORIDE) (TIZANIDINE HYDROCHLORIDE) [Concomitant]
  8. PRORENAL (LIMAPROST) (LIMAPROST) [Concomitant]
  9. AMARYL (GLIMEPIRINE) (GLIMEPRIRIDE) [Concomitant]

REACTIONS (8)
  - WEIGHT DECREASED [None]
  - METABOLIC ACIDOSIS [None]
  - RENAL IMPAIRMENT [None]
  - HYPOTENSION [None]
  - DEHYDRATION [None]
  - HYPERKALAEMIA [None]
  - DECREASED APPETITE [None]
  - DIZZINESS [None]
